FAERS Safety Report 8168056-0 (Version None)
Quarter: 2012Q1

REPORT INFORMATION
  Report Type: 
  Country: None (occurrence: None)
  Receive Date: 20120227
  Receipt Date: 20120217
  Transmission Date: 20120608
  Serious: Yes (Other)
  Sender: FDA-Public Use
  Company Number: PHHY2012JP010489

PATIENT
  Age: 48 Year
  Sex: Male

DRUGS (4)
  1. MYCOPHENOLATE MOFETIL (CELLCEPT) [Concomitant]
     Indication: RENAL TRANSPLANT
  2. METHYLPREDNISOLONE [Concomitant]
     Indication: RENAL TRANSPLANT
  3. BASILIXIMAB [Suspect]
     Indication: RENAL TRANSPLANT
     Dosage: UNK UKN, UNK
  4. TACROLIMUS [Concomitant]
     Indication: RENAL TRANSPLANT

REACTIONS (5)
  - ABDOMINAL DISCOMFORT [None]
  - CYTOMEGALOVIRUS INFECTION [None]
  - DUODENAL ULCER HAEMORRHAGE [None]
  - DUODENAL ULCER [None]
  - MELAENA [None]
